FAERS Safety Report 7790744-6 (Version None)
Quarter: 2011Q3

REPORT INFORMATION
  Report Type: 
  Country: None (occurrence: None)
  Receive Date: 20110930
  Receipt Date: 20110921
  Transmission Date: 20111222
  Serious: Yes (Other)
  Sender: FDA-Public Use
  Company Number: US-ASTRAZENECA-2011SE56905

PATIENT
  Age: 60 Year
  Sex: Female
  Weight: 68.9 kg

DRUGS (17)
  1. WELLBUTRIN [Concomitant]
  2. ISOSORBIDE MONO [Concomitant]
  3. NITROGLYCERIN [Concomitant]
     Indication: CHEST PAIN
  4. O2 [Concomitant]
     Dosage: 2 L AS NEEDED
  5. DUONEB NEB [Concomitant]
     Dosage: FOUR TIMES A DAY AS NEEDED
  6. HYDROCODONE [Concomitant]
     Dosage: 10/325MG 1 TAB QID PRN
  7. PRAVASTATIN [Concomitant]
  8. VENTOLIN HFA [Concomitant]
     Dosage: AS NEEDED
  9. KADIAN [Concomitant]
     Route: 048
  10. HYDROCHLOROTHIAZIDE [Concomitant]
  11. NEXIUM [Suspect]
     Route: 048
  12. RANITIDINE [Concomitant]
  13. PLAVIX [Concomitant]
  14. LUNESTA [Concomitant]
     Route: 048
  15. CHANTIX [Concomitant]
     Dosage: AS DIRECTED
  16. ATENOLOL [Suspect]
     Route: 048
  17. ALDACTONE [Concomitant]

REACTIONS (14)
  - NEUROPATHY PERIPHERAL [None]
  - HYPERTENSION [None]
  - UPPER LIMB FRACTURE [None]
  - BACK PAIN [None]
  - MYOCARDIAL INFARCTION [None]
  - CORONARY ARTERY DISEASE [None]
  - GASTROOESOPHAGEAL REFLUX DISEASE [None]
  - INSOMNIA [None]
  - CHRONIC OBSTRUCTIVE PULMONARY DISEASE [None]
  - FOOT FRACTURE [None]
  - COLONIC POLYP [None]
  - TONSILLAR DISORDER [None]
  - ANXIETY [None]
  - DEPRESSION [None]
